FAERS Safety Report 7570443-6 (Version None)
Quarter: 2011Q2

REPORT INFORMATION
  Report Type: 
  Country: None (occurrence: None)
  Receive Date: 20110624
  Receipt Date: 20110301
  Transmission Date: 20111010
  Serious: No
  Sender: FDA-Public Use
  Company Number: US-ALLERGAN-1102906US

PATIENT
  Age: 47 Year
  Sex: Female

DRUGS (1)
  1. LATISSE [Suspect]
     Indication: GROWTH OF EYELASHES
     Dosage: 1 GTT, QHS
     Route: 061
     Dates: start: 20110201, end: 20110227

REACTIONS (3)
  - OCULAR HYPERAEMIA [None]
  - SKIN HYPERPIGMENTATION [None]
  - IRIS DISORDER [None]
